FAERS Safety Report 11154897 (Version 1)
Quarter: 2015Q2

REPORT INFORMATION
  Report Type: Spontaneous
  Country: US (occurrence: None)
  Receive Date: 20150601
  Receipt Date: 20150601
  Transmission Date: 20150821
  Serious: Yes (Life-Threatening)
  Sender: FDA-Public Use
  Company Number: None

PATIENT
  Age: 53 Year
  Sex: Male
  Weight: 87.54 kg

DRUGS (14)
  1. RESTORIL [Concomitant]
     Active Substance: TEMAZEPAM
  2. ZANTAC [Concomitant]
     Active Substance: RANITIDINE HYDROCHLORIDE
  3. LOPRESSOR [Concomitant]
     Active Substance: METOPROLOL TARTRATE
  4. KLONOPIN [Concomitant]
     Active Substance: CLONAZEPAM
  5. RITALIN [Concomitant]
     Active Substance: METHYLPHENIDATE HYDROCHLORIDE
  6. INTELENCE [Suspect]
     Active Substance: ETRAVIRINE
     Indication: HIV INFECTION
     Dosage: 1 PILL BID ORAL
     Route: 048
     Dates: start: 20130614, end: 20150513
  7. RISPERIDAL [Concomitant]
     Active Substance: RISPERIDONE
  8. ACYCLOVIR. [Concomitant]
     Active Substance: ACYCLOVIR
  9. ISENTRESS [Concomitant]
     Active Substance: RALTEGRAVIR POTASSIUM
  10. LITHIUM CARBONATE. [Concomitant]
     Active Substance: LITHIUM CARBONATE
  11. LOTENSIN [Concomitant]
     Active Substance: BENAZEPRIL HYDROCHLORIDE
  12. EGRIFTA [Concomitant]
     Active Substance: TESAMORELIN
  13. PAXIL [Concomitant]
     Active Substance: PAROXETINE HYDROCHLORIDE
  14. CLARITIN [Concomitant]
     Active Substance: LORATADINE

REACTIONS (5)
  - Loss of consciousness [None]
  - Product solubility abnormal [None]
  - Choking [None]
  - Product size issue [None]
  - Aspiration [None]

NARRATIVE: CASE EVENT DATE: 20150513
